FAERS Safety Report 14934967 (Version 2)
Quarter: 2018Q2

REPORT INFORMATION
  Report Type: Spontaneous
  Country: CH (occurrence: CH)
  Receive Date: 20180524
  Receipt Date: 20180601
  Transmission Date: 20180711
  Serious: Yes (Death, Hospitalization)
  Sender: FDA-Public Use
  Company Number: CH-PFIZER INC-2018210959

PATIENT
  Age: 48 Year
  Sex: Female
  Weight: 48.4 kg

DRUGS (7)
  1. XANAX [Concomitant]
     Active Substance: ALPRAZOLAM
     Dosage: (1-1-1/2-0)
     Route: 048
  2. CYMBALTA [Concomitant]
     Active Substance: DULOXETINE HYDROCHLORIDE
     Dosage: WILL BE REDUCED 1-0-0-0
     Route: 048
  3. SERETIDE [Concomitant]
     Active Substance: FLUTICASONE PROPIONATE\SALMETEROL XINAFOATE
     Dosage: 1 DF, 2X/DAY (1 DF = 0.25 ?G FLUTICASONE / 0.025 ?G SALMETEROLE) (1-0-1-0)
     Route: 055
  4. CYMBALTA [Concomitant]
     Active Substance: DULOXETINE HYDROCHLORIDE
     Dosage: WILL BE REDUCED 1-0-0-0
     Route: 048
  5. SPIRIVA [Concomitant]
     Active Substance: TIOTROPIUM BROMIDE MONOHYDRATE
     Dosage: UNK (IRREGULAR)
     Route: 055
  6. DEPO-PROVERA [Suspect]
     Active Substance: MEDROXYPROGESTERONE ACETATE
     Dosage: EVERY 3 MONTHS
     Dates: start: 20161221, end: 20161221
  7. ZYPREXA [Suspect]
     Active Substance: OLANZAPINE
     Indication: PANIC ATTACK
     Dosage: 2.5 MG, UP TO 4 TABLETS DAILY
     Route: 048
     Dates: start: 2016

REACTIONS (5)
  - Hypercapnia [Fatal]
  - Disease progression [Fatal]
  - Hypoxia [Fatal]
  - Oedema peripheral [Unknown]
  - Lymphangioleiomyomatosis [Fatal]

NARRATIVE: CASE EVENT DATE: 20161224
